FAERS Safety Report 16061810 (Version 1)
Quarter: 2019Q1

REPORT INFORMATION
  Report Type: Spontaneous
  Country: US (occurrence: US)
  Receive Date: 20190312
  Receipt Date: 20190312
  Transmission Date: 20190418
  Serious: No
  Sender: FDA-Public Use
  Company Number: US-PFIZER INC-2019102862

PATIENT
  Age: 20 Year
  Sex: Male
  Weight: 44.9 kg

DRUGS (1)
  1. RAPAMUNE [Suspect]
     Active Substance: SIROLIMUS
     Indication: RENAL TRANSPLANT
     Dosage: 1.7 MG, UNK
     Dates: start: 201812

REACTIONS (1)
  - Nasal congestion [Unknown]
